FAERS Safety Report 9486551 (Version 1)
Quarter: 2013Q3

REPORT INFORMATION
  Report Type: Spontaneous
  Country: US (occurrence: None)
  Receive Date: 20130827
  Receipt Date: 20130827
  Transmission Date: 20140515
  Serious: No
  Sender: FDA-Public Use
  Company Number: None

PATIENT
  Age: 57 Year
  Sex: Male
  Weight: 87.54 kg

DRUGS (2)
  1. RESTASIS 10 RESTASIS [Suspect]
     Indication: EYE PAIN
     Dosage: DROPS TWICE DAILY INTO THE EYE
     Dates: start: 20130416, end: 20130423
  2. RESTASIS 10 RESTASIS [Suspect]
     Indication: PHOTOPHOBIA
     Dosage: DROPS TWICE DAILY INTO THE EYE
     Dates: start: 20130416, end: 20130423

REACTIONS (1)
  - Eye pain [None]
